FAERS Safety Report 6679383-8 (Version None)
Quarter: 2010Q2

REPORT INFORMATION
  Report Type: 
  Country: None (occurrence: None)
  Receive Date: 20100413
  Receipt Date: 20100405
  Transmission Date: 20101027
  Serious: Yes (Other)
  Sender: FDA-Public Use
  Company Number: US-ROCHE-655766

PATIENT
  Sex: Female
  Weight: 59 kg

DRUGS (7)
  1. BONIVA [Suspect]
     Indication: OSTEOPOROSIS
     Route: 048
     Dates: start: 20050101
  2. ASPIRIN [Concomitant]
     Dosage: DRUG: BABY ASPIRIN; DAILY
  3. COREG CR [Concomitant]
  4. LUNESTA [Concomitant]
  5. TYLENOL-500 [Concomitant]
  6. MULTI-VITAMIN [Concomitant]
  7. VITAMIN D3 [Concomitant]

REACTIONS (5)
  - ABDOMINAL DISCOMFORT [None]
  - HEADACHE [None]
  - HYPERTENSION [None]
  - IMPAIRED HEALING [None]
  - POSTOPERATIVE WOUND COMPLICATION [None]
